FAERS Safety Report 21337263 (Version 2)
Quarter: 2022Q3

REPORT INFORMATION
  Report Type: Spontaneous
  Country: SG (occurrence: SG)
  Receive Date: 20220915
  Receipt Date: 20220928
  Transmission Date: 20221027
  Serious: Yes (Life-Threatening, Hospitalization)
  Sender: FDA-Public Use
  Company Number: SG-TEVA-2022-SG-2072250

PATIENT
  Sex: Female

DRUGS (3)
  1. AMLODIPINE [Suspect]
     Active Substance: AMLODIPINE BESYLATE
     Indication: Overdose
     Dosage: ESTIMATED 350MG
     Route: 065
  2. FLUOXETINE [Suspect]
     Active Substance: FLUOXETINE HYDROCHLORIDE
     Indication: Product used for unknown indication
     Route: 065
  3. ZOPICLONE [Suspect]
     Active Substance: ZOPICLONE
     Indication: Product used for unknown indication
     Route: 065

REACTIONS (8)
  - Sinus tachycardia [Recovering/Resolving]
  - Somnolence [Recovering/Resolving]
  - Hypotension [Recovering/Resolving]
  - Lactic acidosis [Recovering/Resolving]
  - Vasoplegia syndrome [Recovering/Resolving]
  - Loss of consciousness [Recovering/Resolving]
  - Toxicity to various agents [Unknown]
  - Overdose [Unknown]
